FAERS Safety Report 8826953 (Version 1)
Quarter: 2012Q4

REPORT INFORMATION
  Report Type: Report from Study
  Country: ES (occurrence: ES)
  Receive Date: 20121005
  Receipt Date: 20121005
  Transmission Date: 20130627
  Serious: Yes (Hospitalization)
  Sender: FDA-Public Use
  Company Number: ES-ABBOTT-12P-144-0988193-00

PATIENT
  Age: 54 Year
  Sex: Male
  Weight: 96 kg

DRUGS (5)
  1. KALETRA [Suspect]
     Indication: HIV INFECTION
     Dosage: 4 tablets/day
     Route: 048
     Dates: start: 20080903
  2. TRUVADA [Concomitant]
     Indication: HIV INFECTION
     Dosage: 200mg/245 mg
     Route: 048
     Dates: start: 20080903
  3. METHADONE [Concomitant]
     Indication: DRUG DEPENDENCE
     Route: 048
     Dates: start: 2004
  4. VENLAFAXINE [Concomitant]
     Indication: DEPRESSION
     Route: 048
     Dates: start: 201010
  5. PANTOPRAZOLE [Concomitant]
     Indication: GASTROOESOPHAGEAL REFLUX DISEASE
     Dates: start: 201203

REACTIONS (1)
  - Depression [Recovered/Resolved]
